FAERS Safety Report 9657122 (Version 2)
Quarter: 2014Q2

REPORT INFORMATION
  Report Type: Spontaneous
  Country: FR (occurrence: FR)
  Receive Date: 20131030
  Receipt Date: 20140611
  Transmission Date: 20141212
  Serious: Yes (Hospitalization)
  Sender: FDA-Public Use
  Company Number: FR-PFIZER INC-2013306768

PATIENT
  Age: 39 Year
  Sex: Male

DRUGS (6)
  1. TAZOCILLINE [Suspect]
     Dosage: UNK
     Route: 041
     Dates: start: 20130508, end: 20130526
  2. VANCOMYCIN [Suspect]
     Dosage: UNK
     Route: 042
     Dates: start: 20130508, end: 20130624
  3. INEXIUM /01479302/ [Suspect]
     Dosage: UNK
     Route: 048
     Dates: start: 20130410, end: 20130624
  4. CANCIDAS [Suspect]
     Dosage: UNK
     Route: 041
     Dates: start: 201305
  5. TIENAM [Suspect]
     Dosage: 250 MG/250 MG, UNK
     Route: 041
     Dates: start: 20130526, end: 20130607
  6. AZACTAM [Suspect]
     Dosage: 1 G, UNK
     Route: 041
     Dates: start: 20130607, end: 20130624

REACTIONS (1)
  - Drug reaction with eosinophilia and systemic symptoms [Recovered/Resolved]
